FAERS Safety Report 13047344 (Version 4)
Quarter: 2017Q2

REPORT INFORMATION
  Report Type: Spontaneous
  Country: US (occurrence: US)
  Receive Date: 20161220
  Receipt Date: 20170519
  Transmission Date: 20170830
  Serious: Yes (Other)
  Sender: FDA-Public Use
  Company Number: US-BAYER-2016-239576

PATIENT
  Age: 51 Year
  Sex: Male

DRUGS (1)
  1. AVELOX [Suspect]
     Active Substance: MOXIFLOXACIN HYDROCHLORIDE
     Dosage: 400 MG, UNK
     Route: 048
     Dates: start: 20071227, end: 20080102

REACTIONS (3)
  - Neuropathy peripheral [None]
  - Nerve injury [None]
  - Anxiety [None]

NARRATIVE: CASE EVENT DATE: 200712
